FAERS Safety Report 9384352 (Version 1)
Quarter: 2013Q3

REPORT INFORMATION
  Report Type: Report from Study
  Country: US (occurrence: US)
  Receive Date: 20130705
  Receipt Date: 20130705
  Transmission Date: 20140515
  Serious: Yes (Death)
  Sender: FDA-Public Use
  Company Number: PHEH2013US014359

PATIENT
  Sex: Male

DRUGS (7)
  1. GLEEVEC [Suspect]
     Indication: MYELOID LEUKAEMIA
     Dosage: 100 MG, DAILY  (1 TABLET BY MOUTH)
     Route: 048
     Dates: start: 20121011
  2. ALLOPURINOL [Concomitant]
     Dosage: UNK UKN, UNK
  3. AMLODIPINE [Concomitant]
     Dosage: UNK UKN, UNK
  4. ASPIRIN [Concomitant]
     Dosage: UNK UKN, UNK
  5. CARVEDIL D [Concomitant]
     Dosage: UNK UKN, UNK
  6. FUROSEMIDE [Concomitant]
     Dosage: UNK UKN, UNK
  7. SIMVASTATIN [Concomitant]
     Dosage: UNK UKN, UNK

REACTIONS (1)
  - Death [Fatal]
